FAERS Safety Report 4705161-2 (Version None)
Quarter: 2005Q3

REPORT INFORMATION
  Report Type: 
  Country: None (occurrence: None)
  Receive Date: 20050701
  Receipt Date: 20050614
  Transmission Date: 20060218
  Serious: Yes (Other)
  Sender: FDA-Public Use
  Company Number: 2005AP03330

PATIENT
  Age: 16749 Day
  Sex: Female

DRUGS (5)
  1. OMEPRAZOLE [Suspect]
     Indication: GASTRIC ULCER
     Route: 048
     Dates: start: 20050607, end: 20050609
  2. OMEPRAZOLE [Suspect]
     Route: 048
     Dates: start: 20050611, end: 20050612
  3. PROMAC [Concomitant]
     Indication: GASTRIC ULCER
     Route: 048
     Dates: start: 20050607, end: 20050609
  4. METHAPHYLLIN [Concomitant]
     Indication: GASTRIC ULCER
     Route: 048
     Dates: start: 20050607
  5. ALANTA [Concomitant]
     Indication: GASTRIC ULCER
     Route: 048
     Dates: start: 20050607

REACTIONS (6)
  - DIARRHOEA [None]
  - DRUG ERUPTION [None]
  - DYSPNOEA [None]
  - ECZEMA [None]
  - OEDEMA PERIPHERAL [None]
  - PYREXIA [None]
